FAERS Safety Report 8137547-0 (Version None)
Quarter: 2012Q1

REPORT INFORMATION
  Report Type: 
  Country: None (occurrence: None)
  Receive Date: 20120103
  Receipt Date: 20110916
  Transmission Date: 20120608
  Serious: No
  Sender: FDA-Public Use
  Company Number: AE-2011-001398

PATIENT
  Age: 60 Year
  Sex: Male
  Weight: 69.4003 kg

DRUGS (3)
  1. PEGASYS [Concomitant]
  2. RIBAVIRIN [Concomitant]
  3. INCIVEK [Suspect]
     Dosage: 2250 MG, (750 MG, 1 IN 8 HR), ORAL
     Route: 048
     Dates: start: 20110819

REACTIONS (5)
  - ASTHMA [None]
  - COUGH [None]
  - RASH GENERALISED [None]
  - CHEST DISCOMFORT [None]
  - WHEEZING [None]
